FAERS Safety Report 10010035 (Version 2)
Quarter: 2014Q1

REPORT INFORMATION
  Report Type: Spontaneous
  Country: US (occurrence: US)
  Receive Date: 20140312
  Receipt Date: 20140312
  Transmission Date: 20141002
  Serious: No
  Sender: FDA-Public Use
  Company Number: US-INCYTE CORPORATION-2013IN000540

PATIENT
  Age: 74 Year
  Sex: Male

DRUGS (11)
  1. JAKAFI [Suspect]
     Indication: MYELOFIBROSIS
     Dosage: 15 MG, BID
     Route: 048
     Dates: start: 20120912
  2. JANUVIA [Concomitant]
  3. LEVOTHROID [Concomitant]
  4. ZINC [Concomitant]
  5. VITAMIN D [Concomitant]
  6. FOLIC ACID [Concomitant]
  7. FLAXSEED OIL [Concomitant]
  8. CALCIUM [Concomitant]
  9. OMEPRAZOL [Concomitant]
  10. LASIX [Concomitant]
  11. SPIRONOLACTONE [Concomitant]

REACTIONS (3)
  - Arthralgia [Recovering/Resolving]
  - Gait disturbance [Unknown]
  - Arthritis [Unknown]
